FAERS Safety Report 5387153-6 (Version None)
Quarter: 2007Q3

REPORT INFORMATION
  Report Type: 
  Country: None (occurrence: None)
  Receive Date: 20070711
  Receipt Date: 20070629
  Transmission Date: 20080115
  Serious: Yes (Hospitalization, Other)
  Sender: FDA-Public Use
  Company Number: 2007US001539

PATIENT
  Age: 4 Year
  Sex: Male
  Weight: 13.7 kg

DRUGS (8)
  1. PROGRAF [Suspect]
     Indication: KIDNEY TRANSPLANT REJECTION
     Dates: start: 20060104
  2. DACLIZUMAB          (DACLIZUMAB) [Suspect]
     Indication: KIDNEY TRANSPLANT REJECTION
     Dosage: 15 MG, IV NOS
     Route: 042
     Dates: start: 20060104, end: 20060306
  3. PREVACID [Concomitant]
  4. VALCYTE [Concomitant]
  5. SEPTRA [Concomitant]
  6. FERROUS SULFATE TAB [Concomitant]
  7. NORVASC [Concomitant]
  8. BICITRA              (SODIUM CITRATE, CITRIC ACID) [Concomitant]

REACTIONS (1)
  - PYELONEPHRITIS [None]
